FAERS Safety Report 8983957 (Version 1)
Quarter: 2012Q4

REPORT INFORMATION
  Report Type: Spontaneous
  Country: DE (occurrence: None)
  Receive Date: 20121218
  Receipt Date: 20121218
  Transmission Date: 20130627
  Serious: Yes (Death)
  Sender: FDA-Public Use
  Company Number: None

PATIENT

DRUGS (1)
  1. CARBAGLU [Suspect]
     Indication: HYPERAMMONEMIA
     Route: 048

REACTIONS (4)
  - Carbamoyl phosphate synthetase deficiency [None]
  - Infection [None]
  - Hyperammonaemia [None]
  - Condition aggravated [None]
